FAERS Safety Report 5132113-3 (Version None)
Quarter: 2006Q4

REPORT INFORMATION
  Report Type: 
  Country: None (occurrence: None)
  Receive Date: 20061017
  Receipt Date: 20061005
  Transmission Date: 20070319
  Serious: Yes (Hospitalization)
  Sender: FDA-Public Use
  Company Number: APP200600294

PATIENT
  Age: 69 Year
  Sex: Female

DRUGS (2)
  1. FLUOROURACIL [Suspect]
     Indication: GASTRIC CANCER
     Dosage: (CYCLE 1), INTRAVENOUS
     Route: 042
     Dates: start: 20060814, end: 20060818
  2. CISPLATIN [Suspect]
     Indication: GASTRIC CANCER
     Dosage: (CYCLE 1), INTRAVENOUS
     Route: 042
     Dates: start: 20060814, end: 20060814

REACTIONS (4)
  - DEHYDRATION [None]
  - MUCOSAL INFLAMMATION [None]
  - NEUTROPENIA [None]
  - PAIN [None]
